FAERS Safety Report 25512947 (Version 1)
Quarter: 2025Q3

REPORT INFORMATION
  Report Type: Spontaneous
  Country: US (occurrence: None)
  Receive Date: 20250703
  Receipt Date: 20250703
  Transmission Date: 20251020
  Serious: No
  Sender: FDA-CTU
  Company Number: None

PATIENT

DRUGS (1)
  1. METHYLPHENIDATE [Suspect]
     Active Substance: METHYLPHENIDATE

REACTIONS (4)
  - Tremor [None]
  - Suicidal ideation [None]
  - Self-destructive behaviour [None]
  - Emotional disorder [None]

NARRATIVE: CASE EVENT DATE: 20241007
